FAERS Safety Report 6249918-8 (Version None)
Quarter: 2009Q2

REPORT INFORMATION
  Report Type: 
  Country: None (occurrence: None)
  Receive Date: 20090629
  Receipt Date: 20090618
  Transmission Date: 20091009
  Serious: Yes (Hospitalization)
  Sender: FDA-Public Use
  Company Number: JP-ASTRAZENECA-2009SE02882

PATIENT
  Sex: Male

DRUGS (1)
  1. CASODEX [Suspect]
     Indication: PROSTATE CANCER
     Route: 048

REACTIONS (2)
  - FRACTURE [None]
  - PYREXIA [None]
